FAERS Safety Report 9373061 (Version 1)
Quarter: 2013Q2

REPORT INFORMATION
  Report Type: Spontaneous
  Country: US (occurrence: None)
  Receive Date: 20130625
  Receipt Date: 20130625
  Transmission Date: 20140414
  Serious: Yes (Death)
  Sender: FDA-Public Use
  Company Number: LMI-2013-00239

PATIENT
  Age: 62 Year
  Sex: Female
  Weight: 113.3 kg

DRUGS (21)
  1. ABLAVAR [Suspect]
     Indication: NUCLEAR MAGNETIC RESONANCE IMAGING
     Route: 042
     Dates: start: 20130610, end: 20130610
  2. PRAVASTATIN (PRAVASTATIN) [Concomitant]
  3. CALCIUM CARBONATE (CALCIUM CARBONATE) [Concomitant]
  4. VITAMIN D3 (COLECALCIFEROL) [Concomitant]
  5. ACETAMINOPHEN (PARACETAMOL) [Concomitant]
  6. DOCUSATE SODIUM (DOCUSATE SODIUM) [Concomitant]
  7. DILTIAZEM [Concomitant]
  8. SERTRALINE (SERTRALINE) [Concomitant]
  9. OMEPRAZOLE (OMEPRAZOLE) [Concomitant]
  10. TRAMADOL (TRAMADOL) [Concomitant]
  11. SPIRIVA (TIOTROPIUM BROMIDE) [Concomitant]
  12. PREDNISONE (PREDNISONE) [Concomitant]
  13. NYSTATIN (NYSTATIN) [Concomitant]
  14. NICOTINE GUM (NICOTINE POLACRILEX) [Concomitant]
  15. LANTUS (INSULIN GLARGINE) [Concomitant]
  16. GLIPIZIDE (GLIPIZIDE) [Concomitant]
  17. FUROSEMIDE (FUROSEMIDE) [Concomitant]
  18. FORMUTEROL (FORMOTEROL) [Concomitant]
  19. CLOBETASOL PROPIONATE (CLOBETASOL PROPIONATE) [Concomitant]
  20. ARIPIPRAZOLE (ARIPIPRAZOLE) [Concomitant]
  21. ALBUTEROL (SALBUTAMOL) [Concomitant]

REACTIONS (4)
  - Respiratory arrest [None]
  - Pharyngeal oedema [None]
  - Pulseless electrical activity [None]
  - Cardio-respiratory arrest [None]
